FAERS Safety Report 12436651 (Version 2)
Quarter: 2016Q2

REPORT INFORMATION
  Report Type: Spontaneous
  Country: AR (occurrence: AR)
  Receive Date: 20160606
  Receipt Date: 20160606
  Transmission Date: 20160815
  Serious: Yes (Other)
  Sender: FDA-Public Use
  Company Number: AR-ALKEM-001686

PATIENT
  Age: 53 Year
  Sex: Male
  Weight: 140 kg

DRUGS (4)
  1. PREDNISONE. [Suspect]
     Active Substance: PREDNISONE
     Indication: RENAL TRANSPLANT
     Dosage: TAPERED TO 5 MG/D FROM MONTH 6
  2. BELATACEPT [Suspect]
     Active Substance: BELATACEPT
     Indication: RENAL TRANSPLANT
     Dosage: 10MG/ KG/DOSE ON DAYS 0, 5, 14, 28, 56, 84 AND 5 MG/KG/DOSE
  3. MYCOPHENOLIC ACID. [Suspect]
     Active Substance: MYCOPHENOLIC ACID
     Indication: RENAL TRANSPLANT
  4. ATG-FRESENIUS [Suspect]
     Active Substance: LAPINE T-LYMPHOCYTE IMMUNE GLOBULIN
     Indication: RENAL TRANSPLANT
     Dosage: 2 TO 5 MG/KG PER DOSE FOR 5 TO 7 DOSES

REACTIONS (4)
  - Enterobacter infection [Unknown]
  - Hypotension [Unknown]
  - Psoriasis [Recovering/Resolving]
  - Bronchospasm [Unknown]
